FAERS Safety Report 9472694 (Version 1)
Quarter: 2013Q3

REPORT INFORMATION
  Report Type: Spontaneous
  Country: US (occurrence: None)
  Receive Date: 20130821
  Receipt Date: 20130821
  Transmission Date: 20140515
  Serious: Yes (Hospitalization)
  Sender: FDA-Public Use
  Company Number: None

PATIENT
  Age: 38 Year
  Sex: Male

DRUGS (2)
  1. CLONAZEPAM [Suspect]
     Indication: DEPRESSION
     Route: 048
     Dates: start: 20110601, end: 20130722
  2. TOPIRAMATE [Suspect]
     Indication: HEADACHE
     Route: 048

REACTIONS (3)
  - Visual impairment [None]
  - Altered state of consciousness [None]
  - Staring [None]
